FAERS Safety Report 8623844-9 (Version None)
Quarter: 2012Q3

REPORT INFORMATION
  Report Type: 
  Country: None (occurrence: None)
  Receive Date: 20120827
  Receipt Date: 20120822
  Transmission Date: 20120928
  Serious: No
  Sender: FDA-Public Use
  Company Number: US-BAYER-2012-088049

PATIENT
  Sex: Male

DRUGS (1)
  1. GADAVIST [Suspect]
     Dosage: 9 ML, ONCE

REACTIONS (1)
  - URTICARIA [None]
